FAERS Safety Report 10731551 (Version 2)
Quarter: 2015Q1

REPORT INFORMATION
  Report Type: Spontaneous
  Country: FR (occurrence: FR)
  Receive Date: 20150123
  Receipt Date: 20150126
  Transmission Date: 20150721
  Serious: Yes (Other)
  Sender: FDA-Public Use
  Company Number: FR-009507513-1501FRA006343

PATIENT
  Age: 39 Year
  Sex: Female
  Weight: 46 kg

DRUGS (1)
  1. NEXPLANON [Suspect]
     Active Substance: ETONOGESTREL
     Indication: CONTRACEPTION
     Dosage: LEFT ARM (68MG IMPLANT)
     Dates: start: 20111110

REACTIONS (8)
  - Surgery [Unknown]
  - Device difficult to use [Unknown]
  - Incorrect drug administration duration [Unknown]
  - Medication error [Unknown]
  - General anaesthesia [Unknown]
  - Device deployment issue [Unknown]
  - Device dislocation [Unknown]
  - Medical device complication [Unknown]

NARRATIVE: CASE EVENT DATE: 201412
